FAERS Safety Report 25331816 (Version 1)
Quarter: 2025Q2

REPORT INFORMATION
  Report Type: Spontaneous
  Country: GB (occurrence: GB)
  Receive Date: 20250519
  Receipt Date: 20250519
  Transmission Date: 20250717
  Serious: Yes (Other)
  Sender: MYLAN
  Company Number: GB-MHRA-EMIS-1369-b86d1b71-e3a0-484b-a736-cf17678d22a9

PATIENT
  Age: 73 Year
  Sex: Female
  Weight: 51 kg

DRUGS (5)
  1. CANDESARTAN [Suspect]
     Active Substance: CANDESARTAN
     Indication: Essential hypertension
     Dosage: 1 DOSAGE FORM, QD
     Dates: start: 20250408, end: 20250422
  2. EZETIMIBE [Concomitant]
     Active Substance: EZETIMIBE
     Indication: Hypercholesterolaemia
     Dosage: 1 DOSAGE FORM, QD
     Dates: start: 20250130
  3. DICLOFENAC DIETHYLAMINE [Concomitant]
     Active Substance: DICLOFENAC DIETHYLAMINE
     Dosage: 1 DOSAGE FORM, Q8H (TDS PRN100 G)
     Dates: start: 20250130, end: 20250314
  4. IBUPROFEN [Concomitant]
     Active Substance: IBUPROFEN
     Dosage: 1 DOSAGE FORM, Q8H (100 G)
     Dates: start: 20250319
  5. AMLODIPINE [Concomitant]
     Active Substance: AMLODIPINE BESYLATE
     Dosage: 1 DOSAGE FORM, QD
     Dates: start: 20250326, end: 20250422

REACTIONS (2)
  - Syncope [Unknown]
  - Dizziness [Unknown]

NARRATIVE: CASE EVENT DATE: 20250408
